FAERS Safety Report 23149908 (Version 1)
Quarter: 2023Q4

REPORT INFORMATION
  Report Type: Spontaneous
  Country: PL (occurrence: PL)
  Receive Date: 20231106
  Receipt Date: 20231106
  Transmission Date: 20240109
  Serious: Yes (Other)
  Sender: FDA-Public Use
  Company Number: None

PATIENT
  Age: 61 Year
  Sex: Male
  Weight: 66 kg

DRUGS (3)
  1. DOCETAXEL [Suspect]
     Active Substance: DOCETAXEL\DOCETAXEL ANHYDROUS
     Indication: Product used for unknown indication
     Dosage: UNIT DOSE : 89.5 MG
     Dates: start: 20210111, end: 20210111
  2. OXALIPLATIN [Suspect]
     Active Substance: OXALIPLATIN
     Indication: Product used for unknown indication
     Dosage: UNIT DOSE : 152.15 MG
     Dates: start: 20210111, end: 20210111
  3. FLUOROURACIL [Suspect]
     Active Substance: FLUOROURACIL
     Indication: Product used for unknown indication
     Dosage: UNIT DOSE : 4654 MG, DURATION : 1 DAY
     Dates: start: 20210111, end: 20210112

REACTIONS (1)
  - Neutropenia [Recovered/Resolved with Sequelae]
